FAERS Safety Report 21194232 (Version 1)
Quarter: 2022Q3

REPORT INFORMATION
  Report Type: Spontaneous
  Country: CN (occurrence: CN)
  Receive Date: 20220810
  Receipt Date: 20220810
  Transmission Date: 20221027
  Serious: Yes (Hospitalization, Other)
  Sender: FDA-Public Use
  Company Number: CN-STRIDES ARCOLAB LIMITED-2022SP009976

PATIENT
  Age: 60 Year
  Sex: Male

DRUGS (6)
  1. PREDNISOLONE [Interacting]
     Active Substance: PREDNISOLONE
     Indication: Pemphigus
     Dosage: 50 MILLIGRAM, PER DAY
     Route: 065
  2. PREDNISOLONE [Interacting]
     Active Substance: PREDNISOLONE
     Dosage: 20 MILLIGRAM, PER DAY
     Route: 065
  3. PREDNISOLONE [Interacting]
     Active Substance: PREDNISOLONE
     Dosage: 75 MILLIGRAM, PER DAY
     Route: 065
  4. PREDNISOLONE [Interacting]
     Active Substance: PREDNISOLONE
     Dosage: 80 MILLIGRAM, PER DAY
     Route: 065
  5. MYCOPHENOLATE MOFETIL [Suspect]
     Active Substance: MYCOPHENOLATE MOFETIL
     Indication: Pemphigus
     Dosage: 1 GRAM, BID, TWICE DAILY
     Route: 065
  6. RIFAMPIN [Interacting]
     Active Substance: RIFAMPIN
     Indication: Pulmonary tuberculosis
     Dosage: UNK
     Route: 065

REACTIONS (5)
  - Drug interaction [Unknown]
  - Pulmonary tuberculosis [Unknown]
  - Drug ineffective [Unknown]
  - Drug resistance [Unknown]
  - Off label use [Unknown]
